FAERS Safety Report 7811541-9 (Version None)
Quarter: 2011Q4

REPORT INFORMATION
  Report Type: 
  Country: None (occurrence: None)
  Receive Date: 20111011
  Receipt Date: 20111004
  Transmission Date: 20120403
  Serious: Yes (Other)
  Sender: FDA-Public Use
  Company Number: A0946951A

PATIENT
  Age: 74 Year
  Sex: Female

DRUGS (1)
  1. ASPIRIN + CAFFEINE + SALICYLAMIDE (FORMULATION UNKNOWN) (ASPIRIN+CAFFE [Suspect]
     Indication: BACK PAIN
     Dosage: 2 PACKAGE PER DAY / ORAL
     Route: 048

REACTIONS (1)
  - VAGINAL HAEMORRHAGE [None]
